FAERS Safety Report 13643033 (Version 2)
Quarter: 2017Q2

REPORT INFORMATION
  Report Type: Report from Study
  Country: US (occurrence: US)
  Receive Date: 20170612
  Receipt Date: 20170615
  Transmission Date: 20170830
  Serious: Yes (Hospitalization, Other)
  Sender: FDA-Public Use
  Company Number: US-GILEAD-2017-0276649

PATIENT
  Age: 57 Year
  Sex: Male

DRUGS (2)
  1. SOFOSBUVIR [Suspect]
     Active Substance: SOFOSBUVIR
     Indication: CHRONIC HEPATITIS C
     Dosage: 1 DF, QD
     Route: 048
     Dates: start: 20140101, end: 20140401
  2. RIBAVIRIN. [Concomitant]
     Active Substance: RIBAVIRIN
     Indication: CHRONIC HEPATITIS C
     Dosage: UNK
     Route: 048

REACTIONS (12)
  - Muscular weakness [Not Recovered/Not Resolved]
  - Joint dislocation [Unknown]
  - Hepatic steatosis [Not Recovered/Not Resolved]
  - Rheumatoid arthritis [Unknown]
  - Polyneuropathy [Unknown]
  - Frustration tolerance decreased [Not Recovered/Not Resolved]
  - Neuropathy peripheral [Unknown]
  - Memory impairment [Not Recovered/Not Resolved]
  - Feeling abnormal [Not Recovered/Not Resolved]
  - Dermatitis [Unknown]
  - Renal impairment [Not Recovered/Not Resolved]
  - Fatigue [Unknown]
